FAERS Safety Report 7134205-6 (Version None)
Quarter: 2010Q4

REPORT INFORMATION
  Report Type: 
  Country: None (occurrence: None)
  Receive Date: 20101203
  Receipt Date: 20101123
  Transmission Date: 20110411
  Serious: Yes (Other)
  Sender: FDA-Public Use
  Company Number: US-AMGEN-USASP2010003512

PATIENT

DRUGS (12)
  1. NPLATE [Suspect]
     Indication: IDIOPATHIC THROMBOCYTOPENIC PURPURA
     Dates: start: 20100514, end: 20100521
  2. CORTICOSTEROIDS [Concomitant]
     Indication: IDIOPATHIC THROMBOCYTOPENIC PURPURA
  3. WINRHO [Concomitant]
     Indication: IDIOPATHIC THROMBOCYTOPENIC PURPURA
  4. NEURONTIN [Concomitant]
     Indication: HERPES ZOSTER
  5. IMMUNOGLOBULINS [Concomitant]
     Indication: MUSCLE DISORDER
  6. LIDOCAINE [Concomitant]
     Indication: PAIN
  7. VALACICLOVIR [Concomitant]
     Indication: HERPES ZOSTER
  8. HYDROCHLOROTHIAZIDE [Concomitant]
     Indication: PRODUCT USED FOR UNKNOWN INDICATION
     Dosage: 12.5 MG, QD
  9. OMEPRAZOLE [Concomitant]
     Indication: PRODUCT USED FOR UNKNOWN INDICATION
     Dosage: 20 MG, QD
  10. FEXOFENADINE HCL SANDOZ [Concomitant]
     Indication: PRODUCT USED FOR UNKNOWN INDICATION
     Dosage: 180 MG, QD
  11. SENNOSIDES A+B [Concomitant]
     Indication: CONSTIPATION
     Dosage: 8.6 MG, PRN
  12. CYCLOSPORINE [Concomitant]
     Indication: PRODUCT USED FOR UNKNOWN INDICATION
     Dosage: 1 GTT, BID

REACTIONS (40)
  - ALLOIMMUNISATION [None]
  - APHTHOUS STOMATITIS [None]
  - ARTHRALGIA [None]
  - ARTHRITIS [None]
  - ARTHROPATHY [None]
  - BACK PAIN [None]
  - BURSITIS [None]
  - CATARACT [None]
  - CERVICOBRACHIAL SYNDROME [None]
  - COMPUTERISED TOMOGRAM ABNORMAL [None]
  - CONSTIPATION [None]
  - CYSTITIS [None]
  - DERMATITIS CONTACT [None]
  - DYSPNOEA [None]
  - ENZYME ABNORMALITY [None]
  - FIBROMYALGIA [None]
  - HAEMATURIA [None]
  - HAEMORRHOIDS [None]
  - HERPES ZOSTER [None]
  - HYPERKERATOSIS [None]
  - HYPERSENSITIVITY [None]
  - HYPERTENSION [None]
  - HYPOAESTHESIA [None]
  - KERATOCONJUNCTIVITIS SICCA [None]
  - MUSCLE DISORDER [None]
  - MYALGIA [None]
  - MYOSITIS [None]
  - NECK PAIN [None]
  - OSTEOARTHRITIS [None]
  - PAIN [None]
  - PARAESTHESIA [None]
  - PHARYNGITIS [None]
  - RASH [None]
  - SICCA SYNDROME [None]
  - SINUSITIS [None]
  - TENDONITIS [None]
  - THROMBOCYTOPENIA [None]
  - VAGINAL INFECTION [None]
  - VIRAL INFECTION [None]
  - WEIGHT DECREASED [None]
